FAERS Safety Report 5176725-X (Version None)
Quarter: 2006Q4

REPORT INFORMATION
  Report Type: 
  Country: None (occurrence: None)
  Receive Date: 20061218
  Receipt Date: 20060911
  Transmission Date: 20070319
  Serious: Yes (Other)
  Sender: FDA-Public Use
  Company Number: US-BAYER-200613866BCC

PATIENT
  Sex: Male
  Weight: 68 kg

DRUGS (7)
  1. ALEVE [Suspect]
     Indication: CHONDROPATHY
     Dosage: UNIT DOSE: 220 MG
     Route: 048
     Dates: start: 20060801
  2. ADVIL [Concomitant]
  3. FLURAZEPAM [Concomitant]
  4. ELAVIL [Concomitant]
  5. VITAMINS [Concomitant]
  6. MINERAL TAB [Concomitant]
  7. HERBS [Concomitant]

REACTIONS (1)
  - PROSTATIC SPECIFIC ANTIGEN INCREASED [None]
